FAERS Safety Report 8402812-6 (Version None)
Quarter: 2012Q2

REPORT INFORMATION
  Report Type: 
  Country: None (occurrence: None)
  Receive Date: 20120601
  Receipt Date: 20120524
  Transmission Date: 20120825
  Serious: Yes (Other)
  Sender: FDA-Public Use
  Company Number: US-JNJFOC-20120518971

PATIENT
  Sex: Female
  Weight: 63.5 kg

DRUGS (6)
  1. TOPAMAX [Suspect]
     Route: 048
     Dates: start: 20120101
  2. TOPAMAX [Suspect]
     Indication: MIGRAINE PROPHYLAXIS
     Route: 048
     Dates: start: 20120101
  3. TOPAMAX [Suspect]
     Route: 048
     Dates: start: 20120101
  4. TOPAMAX [Suspect]
     Indication: FIBROMYALGIA
     Route: 048
     Dates: start: 20100101, end: 20120101
  5. TOPAMAX [Suspect]
     Route: 048
     Dates: start: 20100101, end: 20120101
  6. TOPAMAX [Suspect]
     Indication: BIPOLAR DISORDER
     Route: 048
     Dates: start: 20100101, end: 20120101

REACTIONS (5)
  - HAIR TEXTURE ABNORMAL [None]
  - BRADYPHRENIA [None]
  - WEIGHT DECREASED [None]
  - COGNITIVE DISORDER [None]
  - AMNESIA [None]
